FAERS Safety Report 9459199 (Version 2)
Quarter: 2013Q3

REPORT INFORMATION
  Report Type: Report from Study
  Country: US (occurrence: US)
  Receive Date: 20130814
  Receipt Date: 20130824
  Transmission Date: 20140515
  Serious: Yes (Hospitalization)
  Sender: FDA-Public Use
  Company Number: US-ROCHE-1258930

PATIENT
  Age: 75 Year
  Sex: Female
  Weight: 82 kg

DRUGS (26)
  1. RITUXIMAB [Suspect]
     Indication: DIFFUSE LARGE B-CELL LYMPHOMA
     Dosage: DATE OF MOST RECENT DOSE OF RITUXIMAB PRIOR TO AE ONSET ON 30/JUL/2013. VOLUME OF LAST RITUXIMAB TAK
     Route: 042
     Dates: start: 20130730
  2. CYCLOPHOSPHAMIDE [Suspect]
     Indication: DIFFUSE LARGE B-CELL LYMPHOMA
     Dosage: DATE OF MOST RECENT DOSE OF CYCLOPHOSPHAMIDE PRIOR TO AE ONSET ON 30/JUL/2013. DOSE OF LAST CYCLOPHO
     Route: 042
     Dates: start: 20130730
  3. DOXORUBICIN [Suspect]
     Indication: DIFFUSE LARGE B-CELL LYMPHOMA
     Dosage: DATE OF MOST RECENT DOSE OF DOXORUBICIN PRIOR TO AE ONSET ON 30/JUL/2013. DOSE OF LAST DOXORUBICIN T
     Route: 042
     Dates: start: 20130730
  4. VINCRISTINE [Suspect]
     Indication: DIFFUSE LARGE B-CELL LYMPHOMA
     Dosage: DATE OF MOST RECENT DOSE OF VINCRISTINE PRIOR TO AE ONSET ON 30/JUL/2013. DOSE OF LAST VINCRISTINE T
     Route: 050
     Dates: start: 20130730
  5. PREDNISOLONE [Suspect]
     Indication: DIFFUSE LARGE B-CELL LYMPHOMA
     Dosage: DATE OF MOST RECENT DOSE OF PREDNISOLONE PRIOR TO AE ONSET ON 3/AUG/2013. DOSE OF LAST PREDNISOLONE
     Route: 048
     Dates: start: 20130730
  6. ALLOPURINOL [Concomitant]
     Indication: PROPHYLAXIS
     Route: 065
     Dates: start: 20130730
  7. FUROSEMIDE [Concomitant]
     Indication: OEDEMA PERIPHERAL
     Route: 065
     Dates: start: 20130621
  8. FUROSEMIDE [Concomitant]
     Indication: PROPHYLAXIS
  9. LEVOTHYROXINE SODIUM [Concomitant]
     Indication: HYPOTHYROIDISM
     Route: 065
     Dates: start: 20130621
  10. MAGNESIUM OXIDE [Concomitant]
     Indication: HYPOMAGNESAEMIA
     Route: 065
     Dates: start: 20130621
  11. PLAVIX [Concomitant]
     Indication: PERIPHERAL ARTERIAL OCCLUSIVE DISEASE
     Route: 065
     Dates: start: 20091113
  12. POTASSIUM CHLORIDE [Concomitant]
     Indication: OEDEMA PERIPHERAL
     Route: 065
     Dates: start: 20130621
  13. PRAVASTATIN SODIUM [Concomitant]
     Indication: HYPERLIPIDAEMIA
     Route: 065
     Dates: start: 20091113
  14. PANTOPRAZOLE SODIUM [Concomitant]
     Indication: GASTROOESOPHAGEAL REFLUX DISEASE
     Route: 065
     Dates: start: 20091113
  15. SOTALOL HYDROCHLORIDE [Concomitant]
     Indication: ATRIAL FIBRILLATION
     Route: 065
     Dates: start: 20130722
  16. SPIRONOLACTONE [Concomitant]
     Indication: OEDEMA PERIPHERAL
     Route: 065
     Dates: start: 20130621
  17. TRAMADOL [Concomitant]
     Indication: PAIN
     Route: 065
     Dates: start: 20130621
  18. ALPRAZOLAM [Concomitant]
     Indication: ANXIETY
     Route: 065
     Dates: start: 20130621
  19. PAMIDRONATE [Concomitant]
     Indication: HYPERCALCAEMIA
     Route: 065
     Dates: start: 20130722
  20. RASBURICASE [Concomitant]
     Indication: HYPERURICAEMIA
     Route: 065
     Dates: start: 20130729
  21. ACETAMINOPHEN [Concomitant]
     Indication: PREMEDICATION
     Route: 065
     Dates: start: 20130730
  22. ACETAMINOPHEN [Concomitant]
     Indication: PYREXIA
  23. DIPHENHYDRAMINE HYDROCHLORIDE [Concomitant]
     Indication: PREMEDICATION
     Route: 065
     Dates: start: 20130730
  24. FAMOTIDINE [Concomitant]
     Indication: PREMEDICATION
     Route: 065
     Dates: start: 20130730
  25. ONDANSETRON [Concomitant]
     Indication: PREMEDICATION
     Route: 065
     Dates: start: 20130730
  26. ONDANSETRON [Concomitant]
     Indication: NAUSEA

REACTIONS (4)
  - Hyponatraemia [Recovered/Resolved]
  - Anaemia [Recovered/Resolved]
  - Leukopenia [Recovered/Resolved]
  - Neutropenia [Recovered/Resolved]
